FAERS Safety Report 25388289 (Version 2)
Quarter: 2025Q4

REPORT INFORMATION
  Report Type: Report from Study
  Country: CA (occurrence: CA)
  Receive Date: 20250603
  Receipt Date: 20251104
  Transmission Date: 20260118
  Serious: Yes (Hospitalization, Other)
  Sender: ABBVIE
  Company Number: CA-ABBVIE-6303575

PATIENT
  Age: 75 Year
  Sex: Male

DRUGS (2)
  1. VENCLEXTA [Suspect]
     Active Substance: VENETOCLAX
     Indication: Chronic lymphocytic leukaemia
     Dosage: FORM STRENGTH: 100 MG
     Route: 048
     Dates: start: 20240318
  2. OBINUTUZUMAB [Concomitant]
     Active Substance: OBINUTUZUMAB
     Indication: Product used for unknown indication

REACTIONS (11)
  - Oral fungal infection [Unknown]
  - Chronic lymphocytic leukaemia [Unknown]
  - Oral candidiasis [Recovered/Resolved]
  - Disability [Unknown]
  - Acne [Recovered/Resolved]
  - Rash [Recovered/Resolved]
  - Feeding disorder [Unknown]
  - Red blood cell count decreased [Unknown]
  - Investigation abnormal [Unknown]
  - Oral pain [Unknown]
  - Speech disorder [Unknown]

NARRATIVE: CASE EVENT DATE: 20240412
